FAERS Safety Report 17222108 (Version 1)
Quarter: 2020Q1

REPORT INFORMATION
  Report Type: Spontaneous
  Country: DE (occurrence: DE)
  Receive Date: 20200101
  Receipt Date: 20200101
  Transmission Date: 20200409
  Serious: Yes (Hospitalization)
  Sender: FDA-Public Use
  Company Number: DE-EMD SERONO-E2B_90064247

PATIENT
  Age: 43 Year
  Sex: Female

DRUGS (4)
  1. MENOPUR [Suspect]
     Active Substance: FOLLITROPIN\LUTEINIZING HORMONE
     Indication: MANAGEMENT OF REPRODUCTION
  2. DUPHASTON [Suspect]
     Active Substance: DYDROGESTERONE
     Indication: MANAGEMENT OF REPRODUCTION
  3. SYNARELA [Suspect]
     Active Substance: NAFARELIN ACETATE
     Indication: MANAGEMENT OF REPRODUCTION
  4. OVITRELLE [Suspect]
     Active Substance: CHORIOGONADOTROPIN ALFA
     Indication: MANAGEMENT OF REPRODUCTION

REACTIONS (1)
  - Abdominal pain lower [Recovered/Resolved]

NARRATIVE: CASE EVENT DATE: 20180905
